FAERS Safety Report 23629378 (Version 4)
Quarter: 2024Q3

REPORT INFORMATION
  Report Type: Report from Study
  Country: HU (occurrence: HU)
  Receive Date: 20240313
  Receipt Date: 20240703
  Transmission Date: 20241017
  Serious: Yes (Death, Hospitalization)
  Sender: ABBVIE
  Company Number: HU-ABBVIE-5674296

PATIENT
  Sex: Female

DRUGS (20)
  1. CARBIDOPA\LEVODOPA [Suspect]
     Active Substance: CARBIDOPA\LEVODOPA
     Indication: Parkinson^s disease
     Dosage: MORNING DOSE: 7.7 ML; CONTINUOUS DOSE: 3.2 ML/HOUR; EXTRA DOSE: 2.6 ML
     Route: 050
  2. CARBIDOPA\LEVODOPA [Suspect]
     Active Substance: CARBIDOPA\LEVODOPA
     Dosage: MORNING DOSE: 7.7 ML; CONTINUOUS DOSE: 3.2 ML/HOUR; EXTRA DOSE: 2.6 ML
     Route: 050
     Dates: start: 20200108
  3. CARBIDOPA\LEVODOPA [Suspect]
     Active Substance: CARBIDOPA\LEVODOPA
     Dosage: MORNING DOSE: 7.7 ML; CONTINUOUS DOSE: 3.2 ML/HOUR; EXTRA DOSE: 2.6 ML
  4. TIZANIDINE [Concomitant]
     Active Substance: TIZANIDINE
     Indication: Musculoskeletal disorder
     Dosage: FORM STRENGTH-4 MILLIGRAM
     Route: 048
     Dates: start: 2013
  5. NICERGOLINE [Concomitant]
     Active Substance: NICERGOLINE
     Indication: Product used for unknown indication
     Dosage: FORM STRENGTH 30 MILLIGRAM
     Route: 048
     Dates: start: 2023
  6. BENSERAZIDE HYDROCHLORIDE\LEVODOPA [Concomitant]
     Active Substance: BENSERAZIDE HYDROCHLORIDE\LEVODOPA
     Indication: Parkinson^s disease
     Dosage: 200 MG LEVODOPA, 50 MG BENSERAZIDE /TABLET?FREQUENCY TEXT: 1 TABLET IN THE EVENING
     Route: 048
     Dates: start: 202001
  7. AMLODIPINE BESYLATE [Concomitant]
     Active Substance: AMLODIPINE BESYLATE
     Indication: Hypertension
     Dosage: FORM STRENGTH: 5 MILLIGRAM
     Route: 048
     Dates: start: 2016
  8. TANYDON [Concomitant]
     Indication: Hypertension
     Dosage: FORM STRENGTH UNITS: 80 MILLIGRAM
     Route: 048
     Dates: start: 2023
  9. CORDARONE [Concomitant]
     Active Substance: AMIODARONE HYDROCHLORIDE
     Indication: Atrial fibrillation
     Dosage: FORM STRENGTH: 200 MILLIGRAM
     Route: 048
     Dates: start: 202405
  10. XANAX [Concomitant]
     Active Substance: ALPRAZOLAM
     Indication: Anxiolytic therapy
     Dosage: TIME INTERVAL: 0.33333333 DAYS: FORM STRENGTH: 0.5 MILLIGRAM?DOSE:0.5 MG
     Route: 048
     Dates: start: 2011
  11. Neo-Ferro-Folgamma [Concomitant]
     Indication: Iron deficiency anaemia
     Dosage: 114 MG FERROUS SULFATE, 0.8 MG FOLIC ACID/TABLET
     Route: 048
     Dates: start: 2021
  12. DULOXETINE HYDROCHLORIDE [Concomitant]
     Active Substance: DULOXETINE HYDROCHLORIDE
     Indication: Depression
     Dosage: FORM STRENGTH-30 MILLIGRAM
     Route: 048
     Dates: start: 2018
  13. BACLOFEN [Concomitant]
     Active Substance: BACLOFEN
     Indication: Hypertonia
     Dosage: 100 MILLIGRAM?FORM STRENGTH: 25 MG
     Route: 048
     Dates: start: 202001
  14. BISOPROLOL FUMARATE [Concomitant]
     Active Substance: BISOPROLOL FUMARATE
     Indication: Atrial fibrillation
     Dosage: FORM STRENGTH: 2.5MILLIGRAM;?DOSE: 2.5 MG
     Route: 048
     Dates: start: 202404
  15. ENOXAPARIN SODIUM [Concomitant]
     Active Substance: ENOXAPARIN SODIUM
     Indication: Prophylaxis
     Dosage: FORM STRENGTH: 4000  IU (INTERNATIONAL UNIT)
     Route: 058
     Dates: start: 202010
  16. FENTANYL [Concomitant]
     Active Substance: FENTANYL\FENTANYL CITRATE
     Indication: Analgesic therapy
     Dosage: TIME INTERVAL: 0.33333333 DAYS: DOSE:12.5 UG?37.5 MICROGRAM?FORM STRENGTH UNITS: 12.5 MICROGRAM
     Route: 062
     Dates: start: 202406
  17. MOXONIDINE [Concomitant]
     Active Substance: MOXONIDINE
     Indication: Hypertension
     Dosage: FORM STRENGTH UNITS: 0.3 MILLIGRAM?DOSE: 0.3 MG
     Route: 048
     Dates: start: 2023
  18. PANTOPRAZOLE [Concomitant]
     Active Substance: PANTOPRAZOLE
     Indication: Prophylaxis
     Dosage: 40 MILLIGRAM?FORM STRENGTH: 20 MILLIGRAM
     Route: 048
     Dates: start: 20240610
  19. VITAMIN B12 [Concomitant]
     Active Substance: CYANOCOBALAMIN
     Indication: Prophylaxis
     Dosage: 300 MICROGRAM/ML MONTHLY
     Route: 030
     Dates: start: 202001
  20. TANYDON HCT [Concomitant]
     Indication: Hypertension
     Dosage: 80 MG TELMISARTAN AND 12.5 MG HYDROCHLOROTHIAZIDE/ TABLET?FREQUENCY TEXT: HALF TABLET DAILY
     Route: 048
     Dates: start: 2019

REACTIONS (10)
  - Death [Fatal]
  - Femoral neck fracture [Not Recovered/Not Resolved]
  - Fall [Recovered/Resolved]
  - Device breakage [Not Recovered/Not Resolved]
  - Inflammation [Not Recovered/Not Resolved]
  - Pyrexia [Not Recovered/Not Resolved]
  - Device dislocation [Not Recovered/Not Resolved]
  - Mobility decreased [Not Recovered/Not Resolved]
  - Atrial fibrillation [Recovered/Resolved]
  - Renal failure [Not Recovered/Not Resolved]

NARRATIVE: CASE EVENT DATE: 20240101
